FAERS Safety Report 6196946-7 (Version None)
Quarter: 2009Q2

REPORT INFORMATION
  Report Type: 
  Country: None (occurrence: None)
  Receive Date: 20090518
  Receipt Date: 20090518
  Transmission Date: 20091009
  Serious: Yes (Other)
  Sender: FDA-Public Use
  Company Number: None

PATIENT
  Age: 16 Year
  Sex: Female

DRUGS (1)
  1. PROVENTIL [Suspect]
     Indication: BRONCHOSPASM
     Dosage: 2 INH. Q6 MDT
     Dates: start: 20090504

REACTIONS (3)
  - PLEURISY [None]
  - PRESYNCOPE [None]
  - TACHYCARDIA [None]
